FAERS Safety Report 9670459 (Version 1)
Quarter: 2013Q4

REPORT INFORMATION
  Report Type: Spontaneous
  Country: JP (occurrence: JP)
  Receive Date: 20131106
  Receipt Date: 20131106
  Transmission Date: 20140711
  Serious: No
  Sender: FDA-Public Use
  Company Number: JP-MERCK-1311JPN000672

PATIENT
  Age: 49 Year
  Sex: Male

DRUGS (2)
  1. REFLEX [Suspect]
     Indication: DEPRESSION
     Dosage: 45MG, DAILY
     Route: 048
  2. ESCITALOPRAM OXALATE [Concomitant]
     Route: 048

REACTIONS (1)
  - Atrioventricular block [Unknown]
